FAERS Safety Report 14526063 (Version 1)
Quarter: 2018Q1

REPORT INFORMATION
  Report Type: Spontaneous
  Country: PL (occurrence: PL)
  Receive Date: 20180213
  Receipt Date: 20180213
  Transmission Date: 20180509
  Serious: Yes (Death, Other)
  Sender: FDA-Public Use
  Company Number: PL-MYLANLABS-2018M1009135

PATIENT
  Age: 67 Year
  Sex: Male

DRUGS (16)
  1. INSULIN [Concomitant]
     Active Substance: INSULIN NOS
     Indication: TYPE 2 DIABETES MELLITUS
  2. PAPAVERINE [Concomitant]
     Active Substance: PAPAVERINE
     Indication: ANALGESIC THERAPY
  3. TRAMADOL. [Suspect]
     Active Substance: TRAMADOL
     Dosage: 50?75 MG IN DROPS
     Route: 048
  4. CIPROFLOXACIN. [Concomitant]
     Active Substance: CIPROFLOXACIN
     Indication: MORGANELLA INFECTION
     Dosage: 500 MG, QD
     Route: 048
  5. TRIMETHOPRIM AGEPHA [Concomitant]
     Indication: MORGANELLA INFECTION
     Dosage: 12 HOURS
     Route: 048
     Dates: end: 20120621
  6. TRAMADOL. [Suspect]
     Active Substance: TRAMADOL
     Indication: PAIN
     Dosage: 10 MG, QD
     Route: 058
     Dates: start: 20120817
  7. TRAMADOL. [Suspect]
     Active Substance: TRAMADOL
     Dosage: LARGER DOZE THAN INITIALLY
     Route: 048
  8. TRAMADOL. [Suspect]
     Active Substance: TRAMADOL
     Dosage: 50 MG, UNK
     Route: 048
  9. TRAMADOL. [Suspect]
     Active Substance: TRAMADOL
     Dosage: 400 MG, UNK
     Route: 048
  10. MORPHINE [Suspect]
     Active Substance: MORPHINE
     Indication: PAIN
     Route: 048
     Dates: start: 20120621
  11. MORPHINE 0.5% [Suspect]
     Active Substance: MORPHINE
     Indication: PAIN
     Dosage: 2.5 MG, UNK
     Route: 048
     Dates: start: 20120615
  12. METAMIZOLE [Concomitant]
     Active Substance: METAMIZOLE
     Indication: ANALGESIC THERAPY
  13. AMOXICILLIN/CLAVULANIC ACID [Concomitant]
     Active Substance: AMOXICILLIN\CLAVULANIC ACID
     Indication: PRODUCT USED FOR UNKNOWN INDICATION
     Dosage: 1 G, QD
     Route: 048
  14. DEXAMETHASONE. [Concomitant]
     Active Substance: DEXAMETHASONE
     Indication: PRODUCT USED FOR UNKNOWN INDICATION
     Route: 058
  15. VALPROIC ACID. [Concomitant]
     Active Substance: VALPROIC ACID
     Indication: EPILEPSY
     Dosage: 500 MG, QD
  16. CODEINE [Concomitant]
     Active Substance: CODEINE
     Indication: ANALGESIC THERAPY
     Dosage: UNK

REACTIONS (10)
  - Platelet count decreased [None]
  - Morganella test positive [None]
  - Blood calcium decreased [None]
  - Leukocytosis [None]
  - Pancreatic carcinoma recurrent [None]
  - Chills [Recovered/Resolved]
  - Hyperthermia [Recovered/Resolved]
  - Blood creatinine increased [None]
  - Glomerular filtration rate decreased [None]
  - Haemoglobin decreased [None]
